FAERS Safety Report 10511967 (Version 3)
Quarter: 2014Q4

REPORT INFORMATION
  Report Type: Spontaneous
  Country: JP (occurrence: JP)
  Receive Date: 20141010
  Receipt Date: 20141202
  Transmission Date: 20150528
  Serious: Yes (Death, Life-Threatening, Hospitalization, Other)
  Sender: FDA-Public Use
  Company Number: JP-PFIZER INC-2014274976

PATIENT
  Age: 77 Year
  Sex: Male
  Weight: 45.6 kg

DRUGS (5)
  1. MAXIPIME [Concomitant]
     Active Substance: CEFEPIME HYDROCHLORIDE
     Indication: SPONDYLITIS
     Dosage: 1 G, 2X/DAY
     Route: 041
     Dates: start: 20131113, end: 20131126
  2. ROCEPHIN [Concomitant]
     Active Substance: CEFTRIAXONE SODIUM
     Indication: SPONDYLITIS
     Dosage: 1 G, 2X/DAY
     Route: 041
     Dates: start: 20131127, end: 20131217
  3. VANCOMYCIN [Concomitant]
     Active Substance: VANCOMYCIN
     Indication: SPONDYLITIS
     Dosage: 0.5 G, 4X/DAY
     Route: 041
     Dates: start: 20140104, end: 20140203
  4. ZYVOX [Suspect]
     Active Substance: LINEZOLID
     Indication: SPONDYLITIS
     Dosage: 600 MG, 2X/DAY
     Route: 042
     Dates: start: 20131217, end: 20140104
  5. MEROPEN [Concomitant]
     Active Substance: MEROPENEM
     Indication: SPONDYLITIS
     Dosage: 0.5 G, 2X/DAY
     Route: 041
     Dates: start: 20140104, end: 20140121

REACTIONS (10)
  - Bone marrow failure [None]
  - Urinary tract infection fungal [None]
  - Pancytopenia [Not Recovered/Not Resolved]
  - Pneumonia [Fatal]
  - Disseminated intravascular coagulation [Fatal]
  - Renal impairment [Not Recovered/Not Resolved]
  - Hypocalcaemia [None]
  - Pleural effusion [Fatal]
  - Cardiac failure [None]
  - Device related infection [None]

NARRATIVE: CASE EVENT DATE: 20140104
